FAERS Safety Report 8454209-0 (Version None)
Quarter: 2012Q2

REPORT INFORMATION
  Report Type: 
  Country: None (occurrence: None)
  Receive Date: 20120620
  Receipt Date: 20120612
  Transmission Date: 20120825
  Serious: Yes (Other)
  Sender: FDA-Public Use
  Company Number: US-ROCHE-1022767

PATIENT
  Sex: Female
  Weight: 77.18 kg

DRUGS (17)
  1. OMALIZUMAB [Suspect]
     Indication: ASTHMA
     Route: 058
     Dates: start: 20110921
  2. VITAMIN AND MINERAL PRENATAL SUPPLEMENT W/ FOLIC ACID CAP [Concomitant]
     Indication: PREGNANCY
  3. OMALIZUMAB [Suspect]
     Dates: start: 20111102
  4. ALLEGRA-D 12 HOUR [Concomitant]
     Indication: HYPERSENSITIVITY
  5. SINGULAIR [Concomitant]
     Indication: ASTHMA
  6. XOPENEX [Concomitant]
     Indication: ASTHMA
  7. XOPENEX [Concomitant]
  8. FORADIL [Concomitant]
     Indication: ASTHMA
  9. PULMICORT [Concomitant]
     Indication: ASTHMA
  10. ZYRTEC [Concomitant]
     Indication: HYPERSENSITIVITY
  11. OMALIZUMAB [Suspect]
     Dates: start: 20111005
  12. OMALIZUMAB [Suspect]
     Dates: start: 20111019
  13. OMALIZUMAB [Suspect]
     Dates: start: 20111116
  14. OMALIZUMAB [Suspect]
     Dates: start: 20111214
  15. ACIPHEX [Concomitant]
     Indication: ASTHMA
  16. ASPIRIN [Concomitant]
     Indication: PROPHYLAXIS
  17. OMALIZUMAB [Suspect]
     Dates: start: 20111130

REACTIONS (5)
  - NAUSEA [None]
  - FUNGAL INFECTION [None]
  - GASTROOESOPHAGEAL REFLUX DISEASE [None]
  - MATERNAL EXPOSURE DURING PREGNANCY [None]
  - ASTHMA [None]
